FAERS Safety Report 21063843 (Version 1)
Quarter: 2022Q3

REPORT INFORMATION
  Report Type: Spontaneous
  Country: US (occurrence: None)
  Receive Date: 20220710
  Receipt Date: 20220710
  Transmission Date: 20221026
  Serious: No
  Sender: FDA-Public Use
  Company Number: None

PATIENT
  Age: 75 Year
  Sex: Male
  Weight: 75.6 kg

DRUGS (5)
  1. PAXLOVID [Suspect]
     Active Substance: NIRMATRELVIR\RITONAVIR
     Indication: COVID-19 treatment
     Route: 048
     Dates: start: 20220701, end: 20220706
  2. LOSARTAN [Concomitant]
     Active Substance: LOSARTAN
  3. LOVASTATIN [Concomitant]
     Active Substance: LOVASTATIN
  4. TERAZOSIN [Concomitant]
     Active Substance: TERAZOSIN HYDROCHLORIDE
  5. METOPROLOL [Concomitant]
     Active Substance: METOPROLOL

REACTIONS (3)
  - Muscle spasms [None]
  - Gait disturbance [None]
  - Discomfort [None]

NARRATIVE: CASE EVENT DATE: 20220705
